FAERS Safety Report 11739243 (Version 1)
Quarter: 2015Q4

REPORT INFORMATION
  Report Type: Spontaneous
  Country: US (occurrence: US)
  Receive Date: 20151113
  Receipt Date: 20151113
  Transmission Date: 20160304
  Serious: No
  Sender: FDA-Public Use
  Company Number: US-009507513-1510USA014208

PATIENT
  Sex: Male

DRUGS (1)
  1. KEYTRUDA [Suspect]
     Active Substance: PEMBROLIZUMAB
     Indication: PROSTATE CANCER
     Dosage: 2 MG/KG Q 3 WEEKS
     Route: 042
     Dates: start: 20151021

REACTIONS (3)
  - Product use issue [Unknown]
  - Blood creatinine increased [Unknown]
  - Urinary retention [Unknown]

NARRATIVE: CASE EVENT DATE: 2015
